FAERS Safety Report 4659799-1 (Version None)
Quarter: 2005Q2

REPORT INFORMATION
  Report Type: 
  Country: None (occurrence: None)
  Receive Date: 20050510
  Receipt Date: 20050426
  Transmission Date: 20051028
  Serious: Yes (Other)
  Sender: FDA-Public Use
  Company Number: US015152

PATIENT

DRUGS (1)
  1. GABITRIL [Suspect]
     Indication: ANXIETY

REACTIONS (1)
  - CONVULSION [None]
